FAERS Safety Report 17386761 (Version 1)
Quarter: 2020Q1

REPORT INFORMATION
  Report Type: Spontaneous
  Country: US (occurrence: US)
  Receive Date: 20200206
  Receipt Date: 20200206
  Transmission Date: 20200409
  Serious: Yes (Other)
  Sender: FDA-Public Use
  Company Number: US-ELI_LILLY_AND_COMPANY-US202001013865

PATIENT
  Age: 58 Year
  Sex: Female

DRUGS (4)
  1. HUMALOG [Suspect]
     Active Substance: INSULIN LISPRO
     Dosage: 10 INTERNATIONAL UNIT, TID
     Route: 058
  2. BASAGLAR [Suspect]
     Active Substance: INSULIN GLARGINE
     Indication: DIABETES MELLITUS
     Dosage: 48 INTERNATIONAL UNIT, EACH EVENING
     Route: 058
     Dates: start: 2017
  3. METFORMIN [Concomitant]
     Active Substance: METFORMIN HYDROCHLORIDE
     Indication: DIABETES MELLITUS
     Dosage: 1000 MG, BID
     Route: 065
     Dates: start: 2009
  4. HUMALOG [Suspect]
     Active Substance: INSULIN LISPRO
     Indication: DIABETES MELLITUS
     Dosage: 10 INTERNATIONAL UNIT, TID
     Route: 058
     Dates: start: 2017

REACTIONS (5)
  - Abdominal discomfort [Unknown]
  - Eye disorder [Unknown]
  - Memory impairment [Unknown]
  - Proteinuria [Unknown]
  - Malaise [Unknown]

NARRATIVE: CASE EVENT DATE: 2018
